FAERS Safety Report 22790425 (Version 2)
Quarter: 2023Q4

REPORT INFORMATION
  Report Type: Spontaneous
  Country: JP (occurrence: JP)
  Receive Date: 20230805
  Receipt Date: 20231030
  Transmission Date: 20240109
  Serious: Yes (Death)
  Sender: FDA-Public Use
  Company Number: JP-CHUGAI-2023028419AA

PATIENT
  Sex: Male

DRUGS (1)
  1. AVASTIN [Suspect]
     Active Substance: BEVACIZUMAB
     Indication: Non-small cell lung cancer
     Route: 041
     Dates: start: 20230417, end: 2023

REACTIONS (1)
  - Perforation [Fatal]

NARRATIVE: CASE EVENT DATE: 20230714
